FAERS Safety Report 4452401-3 (Version None)
Quarter: 2004Q3

REPORT INFORMATION
  Report Type: 
  Country: None (occurrence: None)
  Receive Date: 20040917
  Receipt Date: 20040909
  Transmission Date: 20050211
  Serious: Yes (Death, Other)
  Sender: FDA-Public Use
  Company Number: PHBS2004US12016

PATIENT
  Age: 39 Year
  Sex: Male

DRUGS (5)
  1. IMATINIB [Suspect]
     Indication: CHRONIC MYELOID LEUKAEMIA
     Dosage: 400 MG/DAY
     Route: 065
     Dates: start: 20010501
  2. CYTARABINE [Concomitant]
  3. IDARUBICIN HCL [Concomitant]
  4. PREDNISONE [Concomitant]
  5. VINCRISTINE SULFATE [Concomitant]

REACTIONS (5)
  - BLAST CRISIS IN MYELOGENOUS LEUKAEMIA [None]
  - CYTOMEGALOVIRUS INFECTION [None]
  - DISEASE PROGRESSION [None]
  - GRAFT VERSUS HOST DISEASE [None]
  - RESPIRATORY FAILURE [None]
